FAERS Safety Report 16121677 (Version 1)
Quarter: 2019Q1

REPORT INFORMATION
  Report Type: Spontaneous
  Country: FR (occurrence: FR)
  Receive Date: 20190327
  Receipt Date: 20190327
  Transmission Date: 20190418
  Serious: Yes (Hospitalization)
  Sender: FDA-Public Use
  Company Number: FR-AXELLIA-002358

PATIENT
  Age: 54 Year
  Sex: Female
  Weight: 68 kg

DRUGS (11)
  1. VANCOMYCIN [Interacting]
     Active Substance: VANCOMYCIN
     Indication: ANTIBIOTIC THERAPY
     Route: 042
     Dates: start: 20190104, end: 20190105
  2. TAZOBACTAM/TAZOBACTAM SODIUM [Interacting]
     Active Substance: TAZOBACTAM SODIUM
     Indication: ANTIBIOTIC THERAPY
     Route: 042
     Dates: start: 20190104, end: 20190108
  3. LOVENOX [Concomitant]
     Active Substance: ENOXAPARIN SODIUM
     Route: 058
     Dates: start: 20190105, end: 20190108
  4. PROFENID [Interacting]
     Active Substance: KETOPROFEN
     Indication: PAIN
     Dosage: STRENGTH 100 MG, 1 PACKET
     Dates: start: 20190104, end: 20190104
  5. ALPRAZOLAM. [Concomitant]
     Active Substance: ALPRAZOLAM
     Route: 048
  6. AMLOR [Concomitant]
     Active Substance: AMLODIPINE BESYLATE
     Dosage: STRENGTH 5 MG
     Route: 048
  7. PARACETAMOL [Concomitant]
     Active Substance: ACETAMINOPHEN
     Route: 048
     Dates: start: 20190104
  8. DAPTOMYCIN. [Suspect]
     Active Substance: DAPTOMYCIN
     Indication: ANTIBIOTIC THERAPY
     Route: 042
     Dates: start: 20190104, end: 20190108
  9. GENTAMICIN. [Interacting]
     Active Substance: GENTAMICIN
     Indication: ANTIBIOTIC THERAPY
     Dosage: 1 PACKET
     Route: 042
     Dates: start: 20190104, end: 20190104
  10. SKENAN [Concomitant]
     Active Substance: MORPHINE SULFATE
     Dosage: STRENGTH 30 MG,MICROGRANULES WITH PROLONGED RELEASE IN CAPSULE
     Route: 048
     Dates: start: 20190104, end: 20190107
  11. PIPERACILLIN. [Interacting]
     Active Substance: PIPERACILLIN SODIUM
     Indication: ANTIBIOTIC THERAPY
     Route: 042
     Dates: start: 20190104, end: 20190108

REACTIONS (2)
  - Acute kidney injury [Recovered/Resolved]
  - Drug interaction [Unknown]

NARRATIVE: CASE EVENT DATE: 20190105
